FAERS Safety Report 6784054-3 (Version None)
Quarter: 2010Q2

REPORT INFORMATION
  Report Type: 
  Country: None (occurrence: None)
  Receive Date: 20100618
  Receipt Date: 20100607
  Transmission Date: 20101027
  Serious: Yes (Other)
  Sender: FDA-Public Use
  Company Number: 8054186

PATIENT
  Sex: Male
  Weight: 96 kg

DRUGS (9)
  1. CERTOLIZUMAB PEGOL [Suspect]
     Indication: RHEUMATOID ARTHRITIS
     Dosage: 200 MG 1X/2 WEEKS. - NR OF DOSES :8 SUBCUTANEOUS
     Route: 058
     Dates: start: 20090824, end: 20091104
  2. PREDNISONE TAB [Concomitant]
  3. METHOTREXATE [Concomitant]
  4. FOLIC ACID [Concomitant]
  5. PLAQUENIL [Concomitant]
  6. HYDROCHLOROTHIAZIDE [Concomitant]
  7. ATENOLOL [Concomitant]
  8. HYDROCODONE BITARTRATE AND ACETAMINOPHEN [Concomitant]
  9. FLUOROURACIL [Concomitant]

REACTIONS (2)
  - MALIGNANT MELANOMA [None]
  - SCAR [None]
